FAERS Safety Report 5488687-6 (Version None)
Quarter: 2007Q4

REPORT INFORMATION
  Report Type: 
  Country: None (occurrence: None)
  Receive Date: 20071017
  Receipt Date: 20071005
  Transmission Date: 20080405
  Serious: Yes (Other)
  Sender: FDA-Public Use
  Company Number: US-PFIZER INC-2007085164

PATIENT
  Sex: Male
  Weight: 109.09 kg

DRUGS (2)
  1. CHANTIX [Suspect]
     Indication: EX-SMOKER
     Dates: start: 20070820, end: 20070901
  2. ULTRA VITA-MIN [Suspect]
     Indication: WEIGHT DECREASED
     Dates: start: 20070901, end: 20070901

REACTIONS (4)
  - CHEST DISCOMFORT [None]
  - RENAL FAILURE [None]
  - RENAL PAIN [None]
  - UPPER EXTREMITY MASS [None]
